FAERS Safety Report 5800234-5 (Version None)
Quarter: 2008Q3

REPORT INFORMATION
  Report Type: 
  Country: None (occurrence: None)
  Receive Date: 20080703
  Receipt Date: 20080623
  Transmission Date: 20090109
  Serious: Yes (Hospitalization)
  Sender: FDA-Public Use
  Company Number: ES-ELI_LILLY_AND_COMPANY-ES200806005222

PATIENT
  Age: 81 Year
  Sex: Female

DRUGS (2)
  1. FORTEO [Suspect]
     Indication: OSTEOPOROSIS
     Dosage: 20 UG, UNK
     Route: 058
     Dates: start: 20070201
  2. GELOCATIL [Concomitant]
     Dosage: UNK, UNK

REACTIONS (3)
  - CARDIAC FAILURE [None]
  - FALL [None]
  - LOSS OF CONSCIOUSNESS [None]
